FAERS Safety Report 15536170 (Version 1)
Quarter: 2018Q4

REPORT INFORMATION
  Report Type: Spontaneous
  Country: FR (occurrence: FR)
  Receive Date: 20181022
  Receipt Date: 20181022
  Transmission Date: 20190205
  Serious: Yes (Hospitalization)
  Sender: FDA-Public Use
  Company Number: FR-SUN PHARMACEUTICAL INDUSTRIES LTD-2018RR-188190

PATIENT
  Age: 35 Year
  Sex: Male
  Weight: 69.5 kg

DRUGS (8)
  1. VALACICLOVIR [Suspect]
     Active Substance: VALACYCLOVIR HYDROCHLORIDE
     Indication: OPPORTUNISTIC INFECTION PROPHYLAXIS
     Dosage: 1000 MG, UNK
     Route: 048
     Dates: start: 2018, end: 20180904
  2. HOLOXAN [Suspect]
     Active Substance: IFOSFAMIDE
     Indication: B-CELL LYMPHOMA
     Dosage: 6.64 G, UNK
     Route: 042
     Dates: start: 20180828, end: 20180828
  3. BACTRIM [Suspect]
     Active Substance: SULFAMETHOXAZOLE\TRIMETHOPRIM
     Indication: OPPORTUNISTIC INFECTION PROPHYLAXIS
     Dosage: 3 DF, UNK
     Route: 048
     Dates: start: 2018, end: 20180904
  4. ETOPOSIDE. [Suspect]
     Active Substance: ETOPOSIDE
     Indication: B-CELL LYMPHOMA
     Dosage: 200 MG, UNK
     Route: 042
     Dates: start: 20180827, end: 20180828
  5. FENTANYL. [Suspect]
     Active Substance: FENTANYL
     Indication: SEDATION
     Dosage: ()
     Route: 042
     Dates: start: 20180825, end: 20180904
  6. CARBOPLATINE ACCORD [Suspect]
     Active Substance: CARBOPLATIN
     Indication: B-CELL LYMPHOMA
     Dosage: 480 MG, UNK
     Route: 042
     Dates: start: 20180827, end: 20180827
  7. MIDAZOLAM [Suspect]
     Active Substance: MIDAZOLAM HYDROCHLORIDE
     Indication: SEDATION
     Dosage: ()
     Route: 042
     Dates: start: 20180825, end: 20180904
  8. MESNA. [Suspect]
     Active Substance: MESNA
     Indication: B-CELL LYMPHOMA
     Dosage: ()
     Route: 042
     Dates: start: 20180828, end: 20180829

REACTIONS (1)
  - Acute kidney injury [Not Recovered/Not Resolved]

NARRATIVE: CASE EVENT DATE: 20180827
